FAERS Safety Report 11442954 (Version 2)
Quarter: 2015Q3

REPORT INFORMATION
  Report Type: Report from Study
  Country: CA (occurrence: CA)
  Receive Date: 20150901
  Receipt Date: 20150911
  Transmission Date: 20151125
  Serious: Yes (Life-Threatening, Other)
  Sender: FDA-Public Use
  Company Number: CA-APOTEX-2015AP010421

PATIENT
  Age: 26 Year
  Sex: Female
  Weight: 47 kg

DRUGS (2)
  1. DEFERIPRONE [Suspect]
     Active Substance: DEFERIPRONE
     Indication: THALASSAEMIA
     Dosage: 32 MG/KG, TID
     Route: 048
     Dates: start: 20150617, end: 20150817
  2. DESFERAL [Concomitant]
     Active Substance: DEFEROXAMINE MESYLATE
     Indication: PRODUCT USED FOR UNKNOWN INDICATION
     Dosage: UNK
     Dates: start: 201405

REACTIONS (5)
  - Agranulocytosis [Unknown]
  - Contusion [Recovering/Resolving]
  - Chromaturia [Recovering/Resolving]
  - Platelet count decreased [Recovering/Resolving]
  - Neutropenia [Not Recovered/Not Resolved]

NARRATIVE: CASE EVENT DATE: 201506
